FAERS Safety Report 20641279 (Version 4)
Quarter: 2022Q3

REPORT INFORMATION
  Report Type: Report from Study
  Country: US (occurrence: US)
  Receive Date: 20220328
  Receipt Date: 20220903
  Transmission Date: 20221027
  Serious: Yes (Other)
  Sender: FDA-Public Use
  Company Number: US-ABBVIE-22K-163-4332293-00

PATIENT
  Age: 67 Year
  Sex: Female

DRUGS (4)
  1. RINVOQ [Suspect]
     Active Substance: UPADACITINIB
     Indication: Rheumatoid arthritis
     Route: 048
  2. RINVOQ [Suspect]
     Active Substance: UPADACITINIB
     Route: 048
  3. CELEBREX [Concomitant]
     Active Substance: CELECOXIB
     Indication: Product used for unknown indication
  4. CYMBALTA [Concomitant]
     Active Substance: DULOXETINE HYDROCHLORIDE
     Indication: Product used for unknown indication

REACTIONS (15)
  - Rotator cuff syndrome [Unknown]
  - Tendon rupture [Unknown]
  - Procedural pain [Recovering/Resolving]
  - Post-traumatic pain [Recovering/Resolving]
  - Neck surgery [Recovering/Resolving]
  - Fall [Unknown]
  - Sciatica [Unknown]
  - Arthralgia [Unknown]
  - Procedural pain [Unknown]
  - Neuropathy peripheral [Recovering/Resolving]
  - Dysphagia [Recovering/Resolving]
  - SARS-CoV-2 test positive [Recovering/Resolving]
  - Neck pain [Not Recovered/Not Resolved]
  - Dysphagia [Unknown]
  - Choking [Unknown]

NARRATIVE: CASE EVENT DATE: 20210120
